FAERS Safety Report 23058692 (Version 1)
Quarter: 2023Q4

REPORT INFORMATION
  Report Type: Spontaneous
  Country: US (occurrence: US)
  Receive Date: 20231012
  Receipt Date: 20231012
  Transmission Date: 20240110
  Serious: Yes (Hospitalization, Other)
  Sender: FDA-Public Use
  Company Number: US-HORIZON THERAPEUTICS-HZN-2023-007621

PATIENT

DRUGS (6)
  1. KRYSTEXXA [Suspect]
     Active Substance: PEGLOTICASE
     Indication: Gout
     Dosage: 8 MG
     Route: 042
     Dates: start: 20191209, end: 20191209
  2. KRYSTEXXA [Suspect]
     Active Substance: PEGLOTICASE
     Dosage: 8 MG
     Route: 042
     Dates: start: 20200113, end: 20200113
  3. DOCUSATE SODIUM [Concomitant]
     Active Substance: DOCUSATE SODIUM
     Dosage: 100 MG, TID
     Route: 048
  4. LEVAQUIN [Concomitant]
     Active Substance: LEVOFLOXACIN
     Dosage: 750 MG, QD ONCE DAILY FOR THREE DAYS
     Route: 048
  5. COLCHICINE [Concomitant]
     Active Substance: COLCHICINE
  6. ALEVE [Concomitant]
     Active Substance: NAPROXEN SODIUM

REACTIONS (2)
  - Small intestinal obstruction [Recovered/Resolved with Sequelae]
  - Haematological infection [Unknown]

NARRATIVE: CASE EVENT DATE: 20200402
